FAERS Safety Report 15143576 (Version 4)
Quarter: 2018Q4

REPORT INFORMATION
  Report Type: Report from Study
  Country: CA (occurrence: CA)
  Receive Date: 20180713
  Receipt Date: 20181015
  Transmission Date: 20190204
  Serious: Yes (Hospitalization)
  Sender: FDA-Public Use
  Company Number: CA-JNJFOC-20180711938

PATIENT
  Age: 42 Year
  Sex: Male
  Weight: 75.9 kg

DRUGS (2)
  1. STELARA [Suspect]
     Active Substance: USTEKINUMAB
     Indication: CROHN^S DISEASE
     Dosage: STRENGTH = 90 MG
     Route: 058
     Dates: start: 20170922
  2. STELARA [Suspect]
     Active Substance: USTEKINUMAB
     Indication: CROHN^S DISEASE
     Route: 058

REACTIONS (9)
  - Uveitis [Unknown]
  - Gastrointestinal disorder [Unknown]
  - Bacterial infection [Recovered/Resolved]
  - Abdominal pain [Not Recovered/Not Resolved]
  - General physical health deterioration [Recovering/Resolving]
  - Myositis [Unknown]
  - Off label use [Unknown]
  - Product use in unapproved indication [Unknown]
  - Oesophageal ulcer [Unknown]

NARRATIVE: CASE EVENT DATE: 20170922
